FAERS Safety Report 7343130-7 (Version None)
Quarter: 2011Q1

REPORT INFORMATION
  Report Type: 
  Country: None (occurrence: None)
  Receive Date: 20110308
  Receipt Date: 20110308
  Transmission Date: 20110831
  Serious: Yes (Hospitalization)
  Sender: FDA-Public Use
  Company Number: None

PATIENT
  Sex: Male
  Weight: 114 kg

DRUGS (2)
  1. ETOPOSIDE [Suspect]
     Dosage: 600 MG
     Dates: end: 20110216
  2. CISPLATIN [Suspect]
     Dosage: 150 MG
     Dates: end: 20110214

REACTIONS (9)
  - RENAL FAILURE [None]
  - PANCYTOPENIA [None]
  - CHEST PAIN [None]
  - NEUTROPENIA [None]
  - PRODUCTIVE COUGH [None]
  - ANAEMIA [None]
  - HYPOXIA [None]
  - HYPOTENSION [None]
  - SEPSIS [None]
